FAERS Safety Report 7116221-3 (Version None)
Quarter: 2010Q4

REPORT INFORMATION
  Report Type: 
  Country: None (occurrence: None)
  Receive Date: 20101115
  Receipt Date: 20101103
  Transmission Date: 20110411
  Serious: Yes (Hospitalization, Other)
  Sender: FDA-Public Use
  Company Number: 2010US004359

PATIENT
  Age: 37 Year
  Sex: Male

DRUGS (2)
  1. PROGRAF [Suspect]
     Indication: LIVER TRANSPLANT
     Dosage: 2 MG BID, ORAL
     Route: 048
     Dates: start: 20080101, end: 20100201
  2. PROGRAF [Suspect]
     Indication: LIVER TRANSPLANT
     Dosage: 2 MG BID, ORAL
     Route: 048
     Dates: start: 20101001

REACTIONS (22)
  - ABDOMINAL PAIN UPPER [None]
  - ALANINE AMINOTRANSFERASE INCREASED [None]
  - ASPARTATE AMINOTRANSFERASE INCREASED [None]
  - ASTHENIA [None]
  - BLOOD ALKALINE PHOSPHATASE INCREASED [None]
  - BLOOD BILIRUBIN INCREASED [None]
  - CARDIAC MURMUR [None]
  - ECONOMIC PROBLEM [None]
  - FATIGUE [None]
  - GASTRIC VARICES [None]
  - HAEMATURIA [None]
  - HEPATIC CIRRHOSIS [None]
  - HYDRONEPHROSIS [None]
  - JAUNDICE [None]
  - LIVER TRANSPLANT REJECTION [None]
  - OCULAR ICTERUS [None]
  - PLATELET COUNT DECREASED [None]
  - PORTAL VEIN THROMBOSIS [None]
  - TREATMENT NONCOMPLIANCE [None]
  - UMBILICAL HERNIA [None]
  - VARICES OESOPHAGEAL [None]
  - WEIGHT DECREASED [None]
